FAERS Safety Report 17268665 (Version 2)
Quarter: 2020Q1

REPORT INFORMATION
  Report Type: Spontaneous
  Country: US (occurrence: US)
  Receive Date: 20200114
  Receipt Date: 20200124
  Transmission Date: 20200409
  Serious: Yes (Death, Hospitalization)
  Sender: FDA-Public Use
  Company Number: US-PFIZER INC-2020013844

PATIENT
  Age: 24 Year
  Sex: Male

DRUGS (4)
  1. FENTANYL CITRATE. [Suspect]
     Active Substance: FENTANYL CITRATE
     Dosage: UNK
     Route: 055
  2. COCAINE [Suspect]
     Active Substance: COCAINE
     Dosage: UNK
     Route: 055
  3. METHAMPHETAMINE HCL [Suspect]
     Active Substance: METHAMPHETAMINE HYDROCHLORIDE
     Dosage: UNK
     Route: 055
  4. ECGONINE BENZOATE [Suspect]
     Active Substance: BENZOYLECGONINE
     Dosage: UNK
     Route: 055

REACTIONS (3)
  - Cardiac arrest [Fatal]
  - Drug abuse [Fatal]
  - Respiratory arrest [Fatal]

NARRATIVE: CASE EVENT DATE: 2018
